FAERS Safety Report 22958019 (Version 2)
Quarter: 2023Q4

REPORT INFORMATION
  Report Type: Spontaneous
  Country: US (occurrence: US)
  Receive Date: 20230919
  Receipt Date: 20231220
  Transmission Date: 20240109
  Serious: No
  Sender: FDA-Public Use
  Company Number: US-PROVENTION BIO, INC.-US-PRAG-23-00041

PATIENT
  Age: 45 Year
  Sex: Male
  Weight: 83 kg

DRUGS (7)
  1. TZIELD [Suspect]
     Active Substance: TEPLIZUMAB-MZWV
     Indication: Diabetes prophylaxis
     Dosage: 134.55 MICROGRAM
     Route: 042
     Dates: start: 20230526, end: 20230526
  2. TZIELD [Suspect]
     Active Substance: TEPLIZUMAB-MZWV
     Dosage: 258.75 MICROGRAM
     Route: 042
     Dates: start: 20230527, end: 20230527
  3. TZIELD [Suspect]
     Active Substance: TEPLIZUMAB-MZWV
     Dosage: 517.5 MICROGRAM
     Route: 042
     Dates: start: 20230528, end: 20230528
  4. TZIELD [Suspect]
     Active Substance: TEPLIZUMAB-MZWV
     Dosage: 1035 MICROGRAM
     Route: 042
     Dates: start: 20230529, end: 20230529
  5. TZIELD [Suspect]
     Active Substance: TEPLIZUMAB-MZWV
     Dosage: 2132.1 MICROGRAM
     Route: 042
     Dates: start: 20230530, end: 20230530
  6. TZIELD [Suspect]
     Active Substance: TEPLIZUMAB-MZWV
     Dosage: 2132.1 MICROGRAM
     Route: 042
     Dates: start: 20230601, end: 20230609
  7. METFORMIN [Concomitant]
     Active Substance: METFORMIN HYDROCHLORIDE
     Indication: Product used for unknown indication
     Dosage: 1000MG, BID

REACTIONS (8)
  - Chills [Recovered/Resolved]
  - Night sweats [Recovered/Resolved]
  - Pruritus [Recovered/Resolved]
  - Influenza like illness [Recovered/Resolved]
  - Myalgia [Recovered/Resolved]
  - Pyrexia [Unknown]
  - Fatigue [Recovered/Resolved]
  - Liver function test increased [Unknown]

NARRATIVE: CASE EVENT DATE: 20230526
